FAERS Safety Report 4802384-9 (Version None)
Quarter: 2005Q4

REPORT INFORMATION
  Report Type: 
  Country: None (occurrence: None)
  Receive Date: 20051013
  Receipt Date: 20051003
  Transmission Date: 20060501
  Serious: Yes (Other)
  Sender: FDA-Public Use
  Company Number: 2005137221

PATIENT
  Sex: Female

DRUGS (2)
  1. DIFLUCAN [Suspect]
     Indication: COCCIDIOIDOMYCOSIS
     Dosage: 200 MG (200 MG, QD, INTERVAL: EVERY DAY)
     Dates: start: 20020801, end: 20040101
  2. FLUCONAZOLE [Suspect]
     Indication: COCCIDIOIDOMYCOSIS
     Dosage: 200 MG (200 MG, QD INTERVAL: EVERY DAY)
     Dates: start: 20040101

REACTIONS (4)
  - DISEASE RECURRENCE [None]
  - HEADACHE [None]
  - RIFT VALLEY FEVER [None]
  - THERAPEUTIC RESPONSE UNEXPECTED WITH DRUG SUBSTITUTION [None]
